FAERS Safety Report 11896695 (Version 1)
Quarter: 2016Q1

REPORT INFORMATION
  Report Type: Spontaneous
  Country: AU (occurrence: AU)
  Receive Date: 20160107
  Receipt Date: 20160107
  Transmission Date: 20160526
  Serious: Yes (Death, Other)
  Sender: FDA-Public Use
  Company Number: AU-PFIZER INC-2016005648

PATIENT
  Age: 36 Year
  Sex: Male

DRUGS (1)
  1. CHAMPIX [Suspect]
     Active Substance: VARENICLINE TARTRATE
     Indication: SMOKING CESSATION THERAPY

REACTIONS (6)
  - Aggression [Unknown]
  - Sleep disorder [Unknown]
  - Abnormal behaviour [Unknown]
  - Social avoidant behaviour [Unknown]
  - Hallucination [Unknown]
  - Completed suicide [Fatal]
